FAERS Safety Report 6288728-2 (Version None)
Quarter: 2009Q3

REPORT INFORMATION
  Report Type: 
  Country: None (occurrence: None)
  Receive Date: 20090729
  Receipt Date: 20090720
  Transmission Date: 20100115
  Serious: Yes (Hospitalization)
  Sender: FDA-Public Use
  Company Number: PHHY2009CA29284

PATIENT
  Sex: Male

DRUGS (5)
  1. EXJADE [Suspect]
     Indication: MYELODYSPLASTIC SYNDROME
     Dosage: 750 MG, UNK
     Route: 048
     Dates: start: 20090401
  2. EXJADE [Suspect]
     Dosage: UNK
     Dates: start: 20090713
  3. DOMPERIDONE [Concomitant]
     Dosage: 10 MG, UNK
     Route: 048
  4. LANTUS [Concomitant]
     Dosage: 24-26 UNITS QD
  5. GLYBURIDE [Concomitant]
     Dosage: 10 MG, BID
     Route: 048

REACTIONS (4)
  - CYSTITIS [None]
  - DECREASED APPETITE [None]
  - SEPSIS [None]
  - VOMITING [None]
